FAERS Safety Report 14969308 (Version 1)
Quarter: 2018Q2

REPORT INFORMATION
  Report Type: Spontaneous
  Country: HU (occurrence: HU)
  Receive Date: 20180604
  Receipt Date: 20180604
  Transmission Date: 20180711
  Serious: Yes (Other)
  Sender: FDA-Public Use
  Company Number: HU-NOVOPROD-602312

PATIENT
  Sex: Female
  Weight: 3.2 kg

DRUGS (4)
  1. NOVORAPID [Suspect]
     Active Substance: INSULIN ASPART
     Indication: TYPE 1 DIABETES MELLITUS
     Dosage: 2-3 U
     Route: 064
     Dates: start: 20170820, end: 20180510
  2. NOVORAPID [Suspect]
     Active Substance: INSULIN ASPART
     Dosage: 2-3 U
     Route: 063
     Dates: start: 20180513
  3. LEVEMIR [Suspect]
     Active Substance: INSULIN DETEMIR
     Dosage: 2-3 U
     Route: 063
     Dates: start: 20180513
  4. LEVEMIR [Suspect]
     Active Substance: INSULIN DETEMIR
     Indication: TYPE 1 DIABETES MELLITUS
     Dosage: 2-3 U
     Route: 064
     Dates: start: 20170820, end: 20180510

REACTIONS (2)
  - Foetal exposure during pregnancy [Recovered/Resolved]
  - Blood glucose abnormal [Unknown]

NARRATIVE: CASE EVENT DATE: 20170820
